FAERS Safety Report 10155639 (Version 4)
Quarter: 2014Q4

REPORT INFORMATION
  Report Type: Spontaneous
  Country: US (occurrence: US)
  Receive Date: 20140506
  Receipt Date: 20141016
  Transmission Date: 20150528
  Serious: Yes (Hospitalization, Other)
  Sender: FDA-Public Use
  Company Number: US-GLAXOSMITHKLINE-A1071203A

PATIENT
  Age: 60 Year
  Sex: Female

DRUGS (24)
  1. ADVAIR HFA [Suspect]
     Active Substance: FLUTICASONE PROPIONATE\SALMETEROL XINAFOATE
     Indication: CHRONIC OBSTRUCTIVE PULMONARY DISEASE
  2. ADVAIR HFA [Suspect]
     Active Substance: FLUTICASONE PROPIONATE\SALMETEROL XINAFOATE
     Indication: RHINITIS ALLERGIC
  3. FLONASE [Suspect]
     Active Substance: FLUTICASONE PROPIONATE
     Indication: RHINITIS ALLERGIC
     Dosage: 2 SPRAYS PER DAY
     Route: 045
  4. METOCLOPRAMIDE. [Concomitant]
     Active Substance: METOCLOPRAMIDE
  5. XANAX [Concomitant]
     Active Substance: ALPRAZOLAM
  6. AMBIEN [Concomitant]
     Active Substance: ZOLPIDEM TARTRATE
  7. OMEPRAZOLE. [Concomitant]
     Active Substance: OMEPRAZOLE
  8. ADVAIR HFA [Suspect]
     Active Substance: FLUTICASONE PROPIONATE\SALMETEROL XINAFOATE
     Indication: ASTHMA
     Dosage: 250/50 MCG, 1 PUFF TWICE PER DAY
     Route: 055
  9. LISINOPRIL. [Concomitant]
     Active Substance: LISINOPRIL
  10. REGLAN [Concomitant]
     Active Substance: METOCLOPRAMIDE HYDROCHLORIDE
  11. FUROSEMIDE. [Concomitant]
     Active Substance: FUROSEMIDE
  12. FISH OIL [Concomitant]
     Active Substance: FISH OIL
  13. INSULIN [Suspect]
     Active Substance: INSULIN NOS
     Route: 065
  14. ASTHMA MEDICATION [Concomitant]
     Active Substance: UNSPECIFIED INGREDIENT
  15. NOVOLOG [Concomitant]
     Active Substance: INSULIN ASPART
     Route: 065
  16. METHADONE [Concomitant]
     Active Substance: METHADONE HYDROCHLORIDE
  17. CALCIUM CITRATE WITH VITAMIN D [Concomitant]
     Active Substance: CALCIUM CITRATE\VITAMIN D
  18. CYCLOBENZAPRINE [Concomitant]
     Active Substance: CYCLOBENZAPRINE
  19. AMARYL [Concomitant]
     Active Substance: GLIMEPIRIDE
  20. LEVEMIR [Concomitant]
     Active Substance: INSULIN DETEMIR
  21. BREO ELLIPTA [Suspect]
     Active Substance: FLUTICASONE FUROATE\VILANTEROL TRIFENATATE
     Indication: BRONCHITIS
     Route: 065
     Dates: start: 201403
  22. POTASSIUM CHLORIDE. [Concomitant]
     Active Substance: POTASSIUM CHLORIDE
  23. METFORMIN [Concomitant]
     Active Substance: METFORMIN HYDROCHLORIDE
  24. MULTIVITAMIN [Concomitant]
     Active Substance: VITAMINS

REACTIONS (18)
  - Urticaria [Unknown]
  - Fall [Recovered/Resolved]
  - Altered state of consciousness [Unknown]
  - Bronchitis [Recovered/Resolved]
  - Mental impairment [Not Recovered/Not Resolved]
  - Drug ineffective [Unknown]
  - Wheezing [Unknown]
  - Sinus operation [Unknown]
  - Pneumonia [Recovered/Resolved]
  - Treatment noncompliance [Unknown]
  - Expired product administered [Unknown]
  - Asthma [Recovering/Resolving]
  - Drug dose omission [Unknown]
  - Depression [Not Recovered/Not Resolved]
  - Dyspnoea [Not Recovered/Not Resolved]
  - Contusion [Recovered/Resolved]
  - Malaise [Recovering/Resolving]
  - Blood glucose increased [Unknown]

NARRATIVE: CASE EVENT DATE: 201309
